FAERS Safety Report 9257066 (Version 1)
Quarter: 2013Q2

REPORT INFORMATION
  Report Type: Spontaneous
  Country: MX (occurrence: MX)
  Receive Date: 20130426
  Receipt Date: 20130426
  Transmission Date: 20140414
  Serious: Yes (Death, Life-Threatening)
  Sender: FDA-Public Use
  Company Number: MX-B.I. PHARMACEUTICALS,INC./RIDGEFIELD-2013-MX-00154MX

PATIENT
  Age: 86 Year
  Sex: Female
  Weight: 75 kg

DRUGS (6)
  1. PRADAXAR [Suspect]
     Indication: THROMBOSIS PROPHYLAXIS
     Dosage: 220 MG
     Route: 048
     Dates: start: 20130323, end: 20130403
  2. OMEPRAZOL [Concomitant]
     Indication: GASTRITIS PROPHYLAXIS
     Dosage: 20 MG
     Route: 048
     Dates: start: 20130325, end: 20130403
  3. SINERGIX [Concomitant]
     Indication: PAIN
     Dosage: STRENGTH: 10/25MG DAILY DOSE: 3 TABLETS DIALY
     Route: 048
     Dates: start: 20130325, end: 20130403
  4. ALGITRIN [Concomitant]
     Indication: PAIN
     Dosage: 2 EVERY 12HRS
     Route: 048
     Dates: start: 20130325, end: 20130403
  5. ELEQUINE [Concomitant]
     Indication: ANTIBIOTIC THERAPY
     Dosage: 500 MG
     Route: 048
     Dates: start: 20130325, end: 20130403
  6. RIOPAN [Concomitant]
     Indication: GASTRITIS PROPHYLAXIS
     Dosage: 1 EVERY 8HRS
     Route: 048
     Dates: start: 20130329, end: 20130403

REACTIONS (1)
  - Gastrointestinal haemorrhage [Fatal]
